FAERS Safety Report 19899235 (Version 1)
Quarter: 2021Q3

REPORT INFORMATION
  Report Type: Spontaneous
  Country: CN (occurrence: CN)
  Receive Date: 20210929
  Receipt Date: 20210929
  Transmission Date: 20211014
  Serious: Yes (Other)
  Sender: FDA-Public Use
  Company Number: CN-PFIZER INC-202101219270

PATIENT
  Age: 51 Year
  Sex: Female

DRUGS (1)
  1. TAZOCIN [Suspect]
     Active Substance: PIPERACILLIN SODIUM\TAZOBACTAM SODIUM
     Indication: DIABETIC FOOT INFECTION
     Dosage: 4.5 G, THREE TIMES DAILY (EVERY 8 HOURS)
     Route: 041
     Dates: start: 20210719, end: 20210820

REACTIONS (2)
  - White blood cell count decreased [Recovered/Resolved]
  - Myelosuppression [Unknown]

NARRATIVE: CASE EVENT DATE: 20210822
